FAERS Safety Report 8144851-9 (Version None)
Quarter: 2012Q1

REPORT INFORMATION
  Report Type: 
  Country: None (occurrence: None)
  Receive Date: 20120217
  Receipt Date: 20110531
  Transmission Date: 20120608
  Serious: Yes (Other)
  Sender: FDA-Public Use
  Company Number: CA-GLAXOSMITHKLINE-A0929761A

PATIENT
  Sex: Female
  Weight: 77.3 kg

DRUGS (4)
  1. VENTOLIN [Concomitant]
     Indication: DYSPNOEA
     Dosage: 1PUFF AS REQUIRED
     Route: 065
  2. TONALIN [Concomitant]
     Route: 065
  3. ADVAIR DISKUS 100/50 [Suspect]
     Indication: CHRONIC OBSTRUCTIVE PULMONARY DISEASE
     Dosage: 1PUFF AT NIGHT
     Route: 055
     Dates: start: 20090101
  4. CONJUGATED LINOLEIC ACID [Concomitant]
     Route: 065

REACTIONS (8)
  - WHEEZING [None]
  - DEHYDRATION [None]
  - NASOPHARYNGITIS [None]
  - WEIGHT INCREASED [None]
  - MUSCLE SPASMS [None]
  - TREATMENT NONCOMPLIANCE [None]
  - GASTROENTERITIS VIRAL [None]
  - LOWER RESPIRATORY TRACT INFECTION [None]
